FAERS Safety Report 21902902 (Version 1)
Quarter: 2023Q1

REPORT INFORMATION
  Report Type: Spontaneous
  Country: FR (occurrence: FR)
  Receive Date: 20230124
  Receipt Date: 20230124
  Transmission Date: 20230417
  Serious: Yes (Hospitalization)
  Sender: FDA-Public Use
  Company Number: None

PATIENT
  Age: 44 Year
  Sex: Female

DRUGS (3)
  1. BETAMETHASONE DIPROPIONATE\BETAMETHASONE SODIUM PHOSPHATE [Suspect]
     Active Substance: BETAMETHASONE DIPROPIONATE\BETAMETHASONE SODIUM PHOSPHATE
     Indication: Joint injection
     Dosage: 1 AMPULE
     Route: 014
     Dates: start: 20180307, end: 20180307
  2. IOPAMIDOL [Suspect]
     Active Substance: IOPAMIDOL
     Indication: Arthrogram
     Dosage: 4.6 GRAM, ONCE
     Route: 014
     Dates: start: 20180307, end: 20180307
  3. XYLOCAINE [Concomitant]
     Active Substance: LIDOCAINE HYDROCHLORIDE
     Indication: Arthrogram
     Dosage: 75 MILLIGRAM, ONCE
     Route: 014
     Dates: start: 20180307, end: 20180307

REACTIONS (2)
  - Anaphylactic shock [Recovered/Resolved]
  - Allergy test positive [Recovered/Resolved]

NARRATIVE: CASE EVENT DATE: 20180307
